FAERS Safety Report 24664099 (Version 2)
Quarter: 2024Q4

REPORT INFORMATION
  Report Type: Spontaneous
  Country: JP (occurrence: JP)
  Receive Date: 20241126
  Receipt Date: 20241128
  Transmission Date: 20250114
  Serious: Yes (Life-Threatening, Hospitalization)
  Sender: STRIDES
  Company Number: None

PATIENT
  Age: 33 Year
  Sex: Male
  Weight: 30 kg

DRUGS (7)
  1. LEVETIRACETAM [Interacting]
     Active Substance: LEVETIRACETAM
     Indication: Status epilepticus
     Dosage: 1800 MILLIGRAM, EVERY 12 HRS ( (PRESCRIBED FOR OVER 10 YEARS AS HIS DAILY ANTIEPILEPTIC MEDICATION)
     Route: 065
  2. LEVETIRACETAM [Interacting]
     Active Substance: LEVETIRACETAM
     Indication: Epilepsy
  3. ROCURONIUM [Interacting]
     Active Substance: ROCURONIUM BROMIDE
     Indication: Induction of anaesthesia
     Dosage: 20 MILLIGRAM (BOLUSES (0.66 MG/KG))
  4. DIAZEPAM [Concomitant]
     Active Substance: DIAZEPAM
     Indication: Status epilepticus
     Dosage: 10 MILLIGRAM
     Route: 065
  5. OXYGEN [Concomitant]
     Active Substance: OXYGEN
     Indication: Oxygen therapy
     Dosage: 6 LITER; PER MINUTES
     Route: 065
  6. SEVOFLURANE [Concomitant]
     Active Substance: SEVOFLURANE
     Indication: Induction of anaesthesia
     Dosage: UNK (SLOW MASK INDUCTION)
     Route: 065
  7. FENTANYL [Concomitant]
     Active Substance: FENTANYL
     Indication: Induction of anaesthesia
     Dosage: 50 MICROGRAM (BOLUSES)
     Route: 065

REACTIONS (2)
  - Paralysis [Recovered/Resolved]
  - Drug interaction [Unknown]
